FAERS Safety Report 12509188 (Version 3)
Quarter: 2016Q4

REPORT INFORMATION
  Report Type: Spontaneous
  Country: JP (occurrence: JP)
  Receive Date: 20160629
  Receipt Date: 20161003
  Transmission Date: 20170207
  Serious: Yes (Other)
  Sender: FDA-Public Use
  Company Number: JP-PFIZER INC-2016320880

PATIENT
  Age: 54 Year
  Sex: Male

DRUGS (12)
  1. EFFEXOR [Suspect]
     Active Substance: VENLAFAXINE HYDROCHLORIDE
     Indication: DEPRESSION
     Dosage: UNK
     Route: 048
     Dates: end: 20160407
  2. EFFEXOR [Suspect]
     Active Substance: VENLAFAXINE HYDROCHLORIDE
     Dosage: 150 MG, DAILY
     Route: 048
     Dates: start: 20160408, end: 20160421
  3. DOMPERIDONE [Suspect]
     Active Substance: DOMPERIDONE
     Indication: GASTROINTESTINAL DISORDER
     Dosage: 10 MG, 1X/DAY
     Route: 048
     Dates: start: 20160311
  4. DOGMATYL [Suspect]
     Active Substance: SULPIRIDE
     Indication: ANXIETY
  5. LORAZEPAM. [Suspect]
     Active Substance: LORAZEPAM
     Indication: DEPRESSION
     Dosage: 1 MG, 3X/DAY
     Route: 048
     Dates: start: 20150601
  6. EFFEXOR [Suspect]
     Active Substance: VENLAFAXINE HYDROCHLORIDE
     Dosage: 225 MG, DAILY
     Route: 048
     Dates: start: 20160422, end: 20160506
  7. EFFEXOR [Suspect]
     Active Substance: VENLAFAXINE HYDROCHLORIDE
     Dosage: 150 MG, DAILY (AFTER BREAKFAST)
     Route: 048
     Dates: start: 2016, end: 20160826
  8. TECIPUL [Suspect]
     Active Substance: SETIPTILINE
     Indication: DEPRESSION
     Dosage: 1 MG, 2X/DAY
     Route: 048
     Dates: start: 20160422, end: 20160506
  9. FLUNITRAZEPAM [Suspect]
     Active Substance: FLUNITRAZEPAM
     Indication: INSOMNIA
     Dosage: 2 MG, DAILY
     Route: 048
     Dates: start: 20150601
  10. EFFEXOR [Suspect]
     Active Substance: VENLAFAXINE HYDROCHLORIDE
     Dosage: AT A DOSE OF 75 TO 150 MG DAILY ON HIS OWN JUDGMENT
     Route: 048
     Dates: start: 201606, end: 2016
  11. LORAZEPAM. [Suspect]
     Active Substance: LORAZEPAM
     Indication: ANXIETY
  12. DOGMATYL [Suspect]
     Active Substance: SULPIRIDE
     Indication: DEPRESSION
     Dosage: 50 MG, 3X/DAY
     Route: 048
     Dates: start: 20150601

REACTIONS (2)
  - Gastric ulcer [Recovered/Resolved]
  - Drug ineffective [Unknown]

NARRATIVE: CASE EVENT DATE: 2016
